FAERS Safety Report 26213630 (Version 1)
Quarter: 2025Q4

REPORT INFORMATION
  Report Type: Spontaneous
  Country: US (occurrence: US)
  Receive Date: 20251230
  Receipt Date: 20251230
  Transmission Date: 20260118
  Serious: Yes (Life-Threatening, Hospitalization, Other)
  Sender: PFIZER
  Company Number: US-PFIZER INC-PV202500149366

PATIENT
  Age: 57 Year
  Sex: Male

DRUGS (7)
  1. BLEOMYCIN SULFATE [Suspect]
     Active Substance: BLEOMYCIN SULFATE
     Indication: Hodgkin^s disease
     Dosage: UNK UNK, CYCLIC (OVER 120 UNITS)
  2. DOXORUBICIN [Concomitant]
     Active Substance: DOXORUBICIN
     Indication: Hodgkin^s disease
     Dosage: UNK
  3. VINBLASTINE [Concomitant]
     Active Substance: VINBLASTINE
     Indication: Hodgkin^s disease
     Dosage: UNK
  4. DACARBAZINE [Concomitant]
     Active Substance: DACARBAZINE
     Indication: Hodgkin^s disease
     Dosage: UNK
  5. MEROPENEM [Concomitant]
     Active Substance: MEROPENEM
     Indication: Evidence based treatment
     Dosage: UNK
  6. VORICONAZOLE [Concomitant]
     Active Substance: VORICONAZOLE
     Indication: Evidence based treatment
     Dosage: UNK
  7. BACTRIM [Concomitant]
     Active Substance: SULFAMETHOXAZOLE\TRIMETHOPRIM
     Indication: Evidence based treatment
     Dosage: UNK

REACTIONS (2)
  - Acute respiratory distress syndrome [Not Recovered/Not Resolved]
  - Disease progression [Not Recovered/Not Resolved]
